FAERS Safety Report 6244789-8 (Version None)
Quarter: 2009Q2

REPORT INFORMATION
  Report Type: 
  Country: None (occurrence: None)
  Receive Date: 20090619
  Receipt Date: 20090420
  Transmission Date: 20091009
  Serious: No
  Sender: FDA-Public Use
  Company Number: ALL1-2009-01039

PATIENT
  Age: 44 Year
  Sex: Male
  Weight: 103.4 kg

DRUGS (6)
  1. VYVANSE [Suspect]
     Indication: ATTENTION DEFICIT/HYPERACTIVITY DISORDER
     Dosage: 70 MG, 1X/DAY:QD, ORAL
     Route: 048
     Dates: start: 20090413
  2. ATENOLOL [Concomitant]
  3. DYAZIDE [Concomitant]
  4. GEODON [Concomitant]
  5. XANAX [Concomitant]
  6. AMBIEN [Concomitant]

REACTIONS (1)
  - BLOOD PRESSURE DECREASED [None]
